FAERS Safety Report 9644509 (Version 1)
Quarter: 2013Q4

REPORT INFORMATION
  Report Type: Spontaneous
  Country: CO (occurrence: CO)
  Receive Date: 20131025
  Receipt Date: 20131025
  Transmission Date: 20140711
  Serious: Yes (Hospitalization)
  Sender: FDA-Public Use
  Company Number: CO-AMGEN-COLSP2013075449

PATIENT
  Age: 40 Year
  Sex: Female

DRUGS (7)
  1. ENBREL [Suspect]
     Indication: ANKYLOSING SPONDYLITIS
     Dosage: 50 MG, WEEKLY
     Route: 058
     Dates: start: 20130903, end: 20131001
  2. ISONIAZID [Concomitant]
     Indication: TUBERCULIN TEST POSITIVE
     Dosage: 100 MG, 3X/DAY
     Route: 048
     Dates: start: 201308
  3. PYRIDOXINE [Concomitant]
     Indication: TUBERCULIN TEST POSITIVE
     Dosage: 50 MG, 1X/DAY
     Route: 048
     Dates: start: 201308
  4. DIPYRONE [Concomitant]
     Indication: ANKYLOSING SPONDYLITIS
     Dosage: UNK UNK, AS NECESSARY
     Route: 065
     Dates: start: 201309
  5. DICLOFENAC [Concomitant]
     Indication: ANKYLOSING SPONDYLITIS
     Dosage: UNK UNK, AS NECESSARY
     Route: 065
     Dates: start: 201309
  6. MELOXICAM [Concomitant]
     Indication: ANKYLOSING SPONDYLITIS
     Dosage: UNK UNK, AS NECESSARY
     Route: 065
     Dates: start: 201309
  7. DOLEX                              /01495801/ [Concomitant]
     Indication: ANKYLOSING SPONDYLITIS
     Dosage: UNK UNK, AS NECESSARY
     Route: 065
     Dates: start: 201309

REACTIONS (7)
  - Headache [Not Recovered/Not Resolved]
  - Discomfort [Recovered/Resolved]
  - Dizziness [Recovered/Resolved]
  - Blood pressure decreased [Recovered/Resolved]
  - Chills [Recovered/Resolved]
  - Pyrexia [Recovered/Resolved]
  - Tachycardia [Not Recovered/Not Resolved]
